FAERS Safety Report 14113178 (Version 1)
Quarter: 2017Q4

REPORT INFORMATION
  Report Type: Spontaneous
  Country: US (occurrence: None)
  Receive Date: 20171021
  Receipt Date: 20171021
  Transmission Date: 20180321
  Serious: No
  Sender: FDA-Public Use
  Company Number: None

PATIENT
  Age: 56 Year
  Sex: Female

DRUGS (1)
  1. REPATHA [Suspect]
     Active Substance: EVOLOCUMAB
     Indication: HYPERLIPIDAEMIA
     Route: 058
     Dates: start: 20170516

REACTIONS (2)
  - Drug dose omission [None]
  - Cholecystectomy [None]

NARRATIVE: CASE EVENT DATE: 20170923
